FAERS Safety Report 21434700 (Version 1)
Quarter: 2022Q4

REPORT INFORMATION
  Report Type: Spontaneous
  Country: US (occurrence: US)
  Receive Date: 20221010
  Receipt Date: 20221010
  Transmission Date: 20230113
  Serious: No
  Sender: FDA-Public Use
  Company Number: US-AUROBINDO-AUR-APL-2021-039065

PATIENT
  Age: 79 Year
  Sex: Female
  Weight: 66.6 kg

DRUGS (1)
  1. OMEPRAZOLE [Suspect]
     Active Substance: OMEPRAZOLE
     Indication: Acquired oesophageal web
     Dosage: UNK, TWO TIMES A DAY
     Route: 065
     Dates: start: 202105

REACTIONS (1)
  - Hypersensitivity [Unknown]
